FAERS Safety Report 7742603-2 (Version None)
Quarter: 2011Q3

REPORT INFORMATION
  Report Type: 
  Country: None (occurrence: None)
  Receive Date: 20110912
  Receipt Date: 20110909
  Transmission Date: 20111222
  Serious: Yes (Death, Hospitalization, Other)
  Sender: FDA-Public Use
  Company Number: PHFR2011GB03532

PATIENT
  Sex: Male

DRUGS (1)
  1. CLOZAPINE [Suspect]
     Dosage: 12.5 MG, UNK
     Route: 048
     Dates: start: 20090716, end: 20110710

REACTIONS (4)
  - PARKINSON'S DISEASE [None]
  - PNEUMONIA [None]
  - LOWER RESPIRATORY TRACT INFECTION [None]
  - PLATELET COUNT INCREASED [None]
